FAERS Safety Report 10558531 (Version 1)
Quarter: 2014Q4

REPORT INFORMATION
  Report Type: Spontaneous
  Country: CH (occurrence: CH)
  Receive Date: 20141031
  Receipt Date: 20141031
  Transmission Date: 20150529
  Serious: Yes (Death, Hospitalization)
  Sender: FDA-Public Use
  Company Number: CH-PFIZER INC-2014297967

PATIENT
  Age: 73 Year
  Sex: Female

DRUGS (12)
  1. NOVALGIN [Concomitant]
     Active Substance: METAMIZOLE SODIUM
     Indication: ANALGESIC THERAPY
     Dosage: 500 MG, AS NEEDED
     Route: 048
  2. NIZORAL [Concomitant]
     Active Substance: KETOCONAZOLE
     Dosage: 20 MG, 3X/WEEK
     Route: 061
  3. DALACIN C [Suspect]
     Active Substance: CLINDAMYCIN PHOSPHATE
     Indication: ERYSIPELAS
     Dosage: 300 MG, 3X/DAY
     Route: 048
     Dates: start: 20140912, end: 20140918
  4. DAFALGAN [Concomitant]
     Active Substance: ACETAMINOPHEN
     Indication: ANALGESIC THERAPY
     Dosage: 500 MG, AS NEEDED
     Route: 048
  5. TANNOSYNT [Concomitant]
     Dosage: 1 DF, 3X/WEEK
     Route: 061
  6. VARIHESIVE [Concomitant]
     Dosage: UNK
     Route: 061
  7. DALACIN C PHOSPHAT [Suspect]
     Active Substance: CLINDAMYCIN PHOSPHATE
     Indication: ERYSIPELAS
     Dosage: 300 MG, 3X/DAY
     Route: 042
     Dates: start: 20140909, end: 20140911
  8. DIFLUCAN [Suspect]
     Active Substance: FLUCONAZOLE
     Indication: BODY TINEA
     Dosage: 150 MG, 1X/WEEK
     Route: 048
     Dates: start: 20140909
  9. PROTOSAN [Concomitant]
     Dosage: UNK
     Route: 061
  10. NIZORAL [Concomitant]
     Active Substance: KETOCONAZOLE
     Dosage: 1 DF, 1X/DAY
     Route: 061
  11. CLEXANE [Concomitant]
     Active Substance: ENOXAPARIN SODIUM
     Indication: THROMBOSIS PROPHYLAXIS
     Dosage: 40 MG, 1X/DAY
     Route: 058
  12. EXCIPIAL U [Concomitant]
     Active Substance: UREA
     Dosage: 40 MG, 2X/DAY
     Route: 061

REACTIONS (4)
  - Pseudomembranous colitis [Fatal]
  - Clostridium difficile colitis [Fatal]
  - Clostridium test positive [Fatal]
  - Septic shock [Fatal]

NARRATIVE: CASE EVENT DATE: 201410
